FAERS Safety Report 11771734 (Version 1)
Quarter: 2015Q4

REPORT INFORMATION
  Report Type: Spontaneous
  Country: US (occurrence: None)
  Receive Date: 20151123
  Receipt Date: 20151123
  Transmission Date: 20160304
  Serious: Yes (Life-Threatening, Other)
  Sender: FDA-Public Use
  Company Number: None

PATIENT
  Age: 17 Year
  Sex: Female
  Weight: 90.27 kg

DRUGS (1)
  1. SULFAMETHOXAZOLE TRIMETHOPRIM DS [Suspect]
     Active Substance: SULFAMETHOXAZOLE\TRIMETHOPRIM
     Indication: EAR INFECTION
     Dosage: 1
     Route: 048
     Dates: start: 20151006, end: 20151014

REACTIONS (16)
  - Generalised tonic-clonic seizure [None]
  - Dizziness [None]
  - Dyspnoea [None]
  - Rash [None]
  - Urticaria [None]
  - Fatigue [None]
  - Tremor [None]
  - Hypotension [None]
  - Headache [None]
  - Loss of consciousness [None]
  - Chest pain [None]
  - Hypoaesthesia [None]
  - Erythema [None]
  - Chills [None]
  - Feeling hot [None]
  - Heart rate decreased [None]

NARRATIVE: CASE EVENT DATE: 20151108
